FAERS Safety Report 17763649 (Version 1)
Quarter: 2020Q2

REPORT INFORMATION
  Report Type: Report from Study
  Country: None (occurrence: CA)
  Receive Date: 20200509
  Receipt Date: 20200509
  Transmission Date: 20200714
  Serious: Yes (Other)
  Sender: FDA-Public Use
  Company Number: CA-ABBVIE-18K-028-3121251-00

PATIENT
  Sex: Male

DRUGS (1)
  1. IMBRUVICA [Suspect]
     Active Substance: IBRUTINIB
     Indication: CHRONIC GRAFT VERSUS HOST DISEASE
     Route: 048
     Dates: start: 201809, end: 201811

REACTIONS (17)
  - Haemorrhage subcutaneous [Unknown]
  - Muscle spasms [Unknown]
  - Discomfort [Unknown]
  - Fatigue [Not Recovered/Not Resolved]
  - Stomatitis [Recovered/Resolved]
  - Chapped lips [Unknown]
  - Swelling face [Unknown]
  - Skin hyperpigmentation [Recovered/Resolved]
  - Basal cell carcinoma [Unknown]
  - Blister [Unknown]
  - Localised infection [Unknown]
  - Wound haemorrhage [Recovered/Resolved]
  - Atrial fibrillation [Recovered/Resolved]
  - Haematoma [Recovering/Resolving]
  - Nausea [Not Recovered/Not Resolved]
  - Skin atrophy [Unknown]
  - Joint stiffness [Recovered/Resolved]
